FAERS Safety Report 6506254-X (Version None)
Quarter: 2009Q4

REPORT INFORMATION
  Report Type: 
  Country: None (occurrence: None)
  Receive Date: 20091218
  Receipt Date: 20091216
  Transmission Date: 20100525
  Serious: Yes (Death)
  Sender: FDA-Public Use
  Company Number: PHHY2009MX45127

PATIENT
  Sex: Female

DRUGS (2)
  1. DIOVAN HCT [Suspect]
     Indication: HYPERTENSION
     Dosage: 160/12.5 MG, UNK
     Dates: start: 20050701
  2. CHEMOTHERAPEUTICS NOS [Concomitant]

REACTIONS (1)
  - UTERINE CANCER [None]
